FAERS Safety Report 11216209 (Version 2)
Quarter: 2015Q2

REPORT INFORMATION
  Report Type: Spontaneous
  Country: US (occurrence: US)
  Receive Date: 20150624
  Receipt Date: 20150629
  Transmission Date: 20150821
  Serious: Yes (Hospitalization)
  Sender: FDA-Public Use
  Company Number: US-JNJFOC-20150614589

PATIENT
  Sex: Female
  Weight: 55 kg

DRUGS (4)
  1. XANAX [Concomitant]
     Active Substance: ALPRAZOLAM
  2. POTASSIUM [Concomitant]
     Active Substance: POTASSIUM
  3. LEVOFLOXACIN. [Concomitant]
     Active Substance: LEVOFLOXACIN
  4. IMBRUVICA [Suspect]
     Active Substance: IBRUTINIB
     Indication: CHRONIC LYMPHOCYTIC LEUKAEMIA
     Route: 048
     Dates: start: 20150131

REACTIONS (3)
  - Platelet count decreased [Unknown]
  - Disease progression [Unknown]
  - Femur fracture [Unknown]

NARRATIVE: CASE EVENT DATE: 2015
